FAERS Safety Report 10867492 (Version 1)
Quarter: 2015Q1

REPORT INFORMATION
  Report Type: Spontaneous
  Country: US (occurrence: US)
  Receive Date: 20150225
  Receipt Date: 20150225
  Transmission Date: 20150721
  Serious: Yes (Other)
  Sender: FDA-Public Use
  Company Number: US-BAYER-2015-024414

PATIENT
  Age: 23 Year
  Sex: Female

DRUGS (1)
  1. CIPROFLOXACIN. [Suspect]
     Active Substance: CIPROFLOXACIN
     Indication: GASTROENTERITIS
     Dosage: TWO COURSES OF QUINOLONES INCLUDING CIPROFLOXACIN

REACTIONS (6)
  - Weight decreased [Recovering/Resolving]
  - Dyspepsia [Recovering/Resolving]
  - Nausea [Recovering/Resolving]
  - Abdominal pain [Recovering/Resolving]
  - Night sweats [Recovering/Resolving]
  - Chronic gastritis [Recovering/Resolving]
